FAERS Safety Report 7763909-7 (Version None)
Quarter: 2011Q3

REPORT INFORMATION
  Report Type: 
  Country: None (occurrence: None)
  Receive Date: 20110916
  Receipt Date: 20110831
  Transmission Date: 20111222
  Serious: Yes (Other)
  Sender: FDA-Public Use
  Company Number: 2011AT000343

PATIENT
  Age: 77 Year
  Sex: Female

DRUGS (2)
  1. ALPROSTADIL [Suspect]
     Indication: HYPOTENSIVE ANAESTHESIA PROCEDURE
     Dosage: 500 UG;QD;IVDRP
     Route: 041
     Dates: start: 20110830, end: 20110830
  2. SEVOFLURANE [Concomitant]

REACTIONS (2)
  - OFF LABEL USE [None]
  - OXYGEN SATURATION DECREASED [None]
